FAERS Safety Report 20751654 (Version 2)
Quarter: 2022Q2

REPORT INFORMATION
  Report Type: Report from Study
  Country: EG (occurrence: EG)
  Receive Date: 20220426
  Receipt Date: 20220609
  Transmission Date: 20220721
  Serious: Yes (Other)
  Sender: FDA-Public Use
  Company Number: EG-009507513-2110EGY000991

PATIENT
  Age: 63 Year
  Sex: Male

DRUGS (21)
  1. PEMBROLIZUMAB [Suspect]
     Active Substance: PEMBROLIZUMAB
     Indication: Transitional cell carcinoma
     Dosage: 200 MILLIGRAM, Q3W
     Dates: start: 20210823, end: 20210823
  2. PEMBROLIZUMAB [Suspect]
     Active Substance: PEMBROLIZUMAB
     Indication: Metastases to liver
     Dosage: UNK
     Dates: start: 20211118, end: 20211118
  3. PEMBROLIZUMAB [Suspect]
     Active Substance: PEMBROLIZUMAB
     Dosage: UNK
     Dates: start: 20211216, end: 20211216
  4. PEMBROLIZUMAB [Suspect]
     Active Substance: PEMBROLIZUMAB
     Dosage: UNK
     Dates: start: 20220212, end: 20220212
  5. PEMBROLIZUMAB [Suspect]
     Active Substance: PEMBROLIZUMAB
     Dosage: UNK
     Dates: start: 20220515, end: 20220515
  6. HYDROCHLOROTHIAZIDE\VALSARTAN [Concomitant]
     Active Substance: HYDROCHLOROTHIAZIDE\VALSARTAN
     Indication: Hypertension
     Dosage: TABS/160/12.5/ONCE DAILY
     Route: 048
  7. HYDROCHLOROTHIAZIDE\VALSARTAN [Concomitant]
     Active Substance: HYDROCHLOROTHIAZIDE\VALSARTAN
     Indication: Cardiac disorder
     Dosage: 320/25
  8. CONCOR 5 PLUS [Concomitant]
     Indication: Hypertension
     Dosage: 5 MILLIGRAM, ONCE DAILY
  9. TRESIBA [Concomitant]
     Active Substance: INSULIN DEGLUDEC
     Indication: Diabetes mellitus
     Dosage: 25 UNITS, DEPENDS ON BLOOD GLUCOSE LEVEL, ONCE DAILY, IN THE EVENING
  10. HUMALOG [Concomitant]
     Active Substance: INSULIN LISPRO
     Indication: Diabetes mellitus
     Dosage: ONCE DAILY, INSULIN
  11. HUMALOG [Concomitant]
     Active Substance: INSULIN LISPRO
     Dosage: 3 TIMES||TID
  12. HUMALOG [Concomitant]
     Active Substance: INSULIN LISPRO
     Dosage: AROUND 25 UNIT, TWICE ACCORDING TO MEALS
  13. BISOPROLOL FUMARATE [Concomitant]
     Active Substance: BISOPROLOL FUMARATE
     Indication: Hypertension
     Dosage: 5 MILLIGRAM, ONCE DAILY
     Route: 048
  14. MINERALS\VITAMINS [Concomitant]
     Active Substance: MINERALS\VITAMINS
     Indication: Vitamin supplementation
     Dosage: 320/25
  15. LIVAGOAL [Concomitant]
     Indication: Supplementation therapy
     Dosage: UNK
     Dates: start: 2019
  16. FERROGLOBIN [FERROUS SULFATE] [Concomitant]
     Indication: Mineral supplementation
  17. PROSTANORM [TERAZOSIN HYDROCHLORIDE] [Concomitant]
     Indication: Prostatomegaly
  18. OZEMPIC [Concomitant]
     Active Substance: SEMAGLUTIDE
     Dosage: 0.25 MILLIGRAM, QW
  19. TAMSULOSIN HYDROCHLORIDE [Concomitant]
     Active Substance: TAMSULOSIN HYDROCHLORIDE
     Dosage: UNK, ONCE DAILY FOR PROSTATE
  20. .ALPHA.-LIPOIC ACID [Concomitant]
     Active Substance: .ALPHA.-LIPOIC ACID
     Dosage: UNK, ONCE DAILY FOR NUERONS
  21. AMLODIPINE BESYLATE\INDAPAMIDE\PERINDOPRIL ARGININE [Concomitant]
     Active Substance: AMLODIPINE BESYLATE\INDAPAMIDE\PERINDOPRIL ARGININE
     Dosage: 10/2.5/10

REACTIONS (10)
  - Liver abscess [Recovered/Resolved]
  - Malignant neoplasm progression [Unknown]
  - Pancreatitis [Recovered/Resolved]
  - Abscess drainage [Unknown]
  - COVID-19 [Recovered/Resolved]
  - Product use issue [Unknown]
  - Product use issue [Unknown]
  - Product use issue [Unknown]
  - Product use issue [Unknown]
  - Product use issue [Unknown]

NARRATIVE: CASE EVENT DATE: 20210101
